FAERS Safety Report 8049686-3 (Version None)
Quarter: 2012Q1

REPORT INFORMATION
  Report Type: 
  Country: None (occurrence: None)
  Receive Date: 20120117
  Receipt Date: 20111019
  Transmission Date: 20120608
  Serious: Yes (Other)
  Sender: FDA-Public Use
  Company Number: CA-GLAXOSMITHKLINE-A0949765A

PATIENT
  Sex: Female

DRUGS (5)
  1. VENTOLIN [Suspect]
     Indication: PRODUCT USED FOR UNKNOWN INDICATION
     Dosage: 2PUFF AS REQUIRED
     Route: 065
  2. DIURETICS [Concomitant]
  3. ADVAIR DISKUS 100/50 [Suspect]
     Indication: ASTHMA
     Dosage: 1PUFF TWICE PER DAY
     Route: 055
     Dates: start: 20110701
  4. METHACHOLINE CHLORIDE [Suspect]
     Indication: PULMONARY FUNCTION CHALLENGE TEST
     Route: 065
     Dates: start: 20120106
  5. BLOOD PRESSURE MEDICATION [Concomitant]

REACTIONS (12)
  - WHEEZING [None]
  - MUSCLE SPASMS [None]
  - PAIN IN EXTREMITY [None]
  - LIMB INJURY [None]
  - DYSPNOEA [None]
  - PAIN [None]
  - ASTHMA [None]
  - NONSPECIFIC REACTION [None]
  - SENSATION OF PRESSURE [None]
  - MUSCULOSKELETAL DISCOMFORT [None]
  - COUGH [None]
  - JOINT LOCK [None]
